FAERS Safety Report 5393018-6 (Version None)
Quarter: 2007Q3

REPORT INFORMATION
  Report Type: 
  Country: None (occurrence: None)
  Receive Date: 20070719
  Receipt Date: 20070703
  Transmission Date: 20080115
  Serious: Yes (Other)
  Sender: FDA-Public Use
  Company Number: 8021277

PATIENT
  Age: 35 Year
  Sex: Female

DRUGS (6)
  1. KEPPRA [Suspect]
     Indication: EPILEPSY
     Dosage: 500 MG 2/D PO
     Route: 048
     Dates: start: 20061017, end: 20061114
  2. KEPPRA [Suspect]
     Indication: EPILEPSY
     Dosage: 500 MG  /D PO
     Route: 048
     Dates: start: 20061212, end: 20070211
  3. KEPPRA [Suspect]
     Indication: EPILEPSY
     Dosage: 250 MG 2/D PO
     Route: 048
     Dates: start: 20070212
  4. PRENATAL VITAMINS [Concomitant]
  5. FOLIC ACID [Concomitant]
  6. LAMICTAL [Concomitant]

REACTIONS (8)
  - ANGER [None]
  - CAESAREAN SECTION [None]
  - DEPRESSION [None]
  - DRUG EXPOSURE DURING PREGNANCY [None]
  - PARTIAL SEIZURES [None]
  - PREGNANCY [None]
  - STRESS [None]
  - SUICIDAL IDEATION [None]
